FAERS Safety Report 6161041-X (Version None)
Quarter: 2009Q2

REPORT INFORMATION
  Report Type: 
  Country: None (occurrence: None)
  Receive Date: 20090420
  Receipt Date: 20090408
  Transmission Date: 20091009
  Serious: Yes (Death)
  Sender: FDA-Public Use
  Company Number: US-PFIZER INC-2009195689

PATIENT
  Sex: Male
  Weight: 68.027 kg

DRUGS (2)
  1. XANAX [Suspect]
     Dosage: 18.3 NG/ML, 1 TIME
     Route: 048
     Dates: start: 20071026
  2. CAFFEINE [Suspect]
     Dosage: 16 FLUID OUNCES, 1 TIME
     Route: 048
     Dates: start: 20071026

REACTIONS (3)
  - ARRHYTHMIA [None]
  - DEATH [None]
  - SUDDEN DEATH [None]
